FAERS Safety Report 15468492 (Version 1)
Quarter: 2018Q4

REPORT INFORMATION
  Report Type: Spontaneous
  Country: US (occurrence: US)
  Receive Date: 20181001
  Receipt Date: 20181001
  Transmission Date: 20190204
  Serious: No
  Sender: FDA-Public Use
  Company Number: None

PATIENT
  Age: 30 Year
  Sex: Female

DRUGS (1)
  1. STELARA [Suspect]
     Active Substance: USTEKINUMAB
     Dosage: ?          OTHER FREQUENCY:OTHER;?
     Route: 058
     Dates: start: 201806

REACTIONS (5)
  - Headache [None]
  - Fatigue [None]
  - Hypersensitivity [None]
  - Rhinorrhoea [None]
  - Pain [None]

NARRATIVE: CASE EVENT DATE: 20180928
